FAERS Safety Report 7474348-0 (Version None)
Quarter: 2011Q2

REPORT INFORMATION
  Report Type: 
  Country: None (occurrence: None)
  Receive Date: 20110511
  Receipt Date: 20100703
  Transmission Date: 20111010
  Serious: No
  Sender: FDA-Public Use
  Company Number: US-AMGEN-TCS422545

PATIENT
  Age: 64 Year
  Sex: Female

DRUGS (2)
  1. ENBREL [Suspect]
     Indication: PSORIATIC ARTHROPATHY
     Dosage: 50 MG, 2 TIMES/WK
     Route: 058
     Dates: start: 20041022
  2. ENBREL [Suspect]
     Indication: PSORIASIS

REACTIONS (4)
  - LOCAL SWELLING [None]
  - PSORIASIS [None]
  - PAIN IN EXTREMITY [None]
  - PSORIATIC ARTHROPATHY [None]
